FAERS Safety Report 4818231-5 (Version None)
Quarter: 2005Q3

REPORT INFORMATION
  Report Type: 
  Country: None (occurrence: None)
  Receive Date: 20050929
  Receipt Date: 20050712
  Transmission Date: 20060218
  Serious: No
  Sender: FDA-Public Use
  Company Number: 05P-163-0305544-00

PATIENT
  Age: 81 Year
  Sex: Female
  Weight: 88.4514 kg

DRUGS (11)
  1. HUMIRA [Suspect]
     Indication: RHEUMATOID ARTHRITIS
     Dosage: 40 MG, 1 IN 2 WK, SUBCUTANEOUS
     Route: 058
     Dates: start: 20050501
  2. HYDROXYCHLORQUINE PHOSPHATE [Concomitant]
  3. METHOTREXATE SODIUM [Concomitant]
  4. CALCIUM FOLINATE [Concomitant]
  5. LEVOTHYROXINE [Concomitant]
  6. NORTRIPTYLINE HCL [Concomitant]
  7. AMILORIDE HCL [Concomitant]
  8. FOLIC ACID [Concomitant]
  9. ATENOLOL [Concomitant]
  10. BENAZEPRIL HCL [Concomitant]
  11. ZOCOR [Concomitant]

REACTIONS (1)
  - MOUTH ULCERATION [None]
